FAERS Safety Report 25249230 (Version 1)
Quarter: 2025Q2

REPORT INFORMATION
  Report Type: Spontaneous
  Country: US (occurrence: US)
  Receive Date: 20250429
  Receipt Date: 20250429
  Transmission Date: 20250716
  Serious: No
  Sender: ABBVIE
  Company Number: US-ABBVIE-6244174

PATIENT
  Age: 86 Year
  Sex: Female
  Weight: 78 kg

DRUGS (2)
  1. CYCLOSPORINE [Suspect]
     Active Substance: CYCLOSPORINE
     Indication: Dry eye
     Dosage: 0.050 %  ONE DROP IN EACH EYE TWICE A DAY EVERY 12 HOURS?OPHTHALMIC EMULSION
     Route: 047
     Dates: start: 20250322
  2. REFRESH TEARS [Concomitant]
     Active Substance: CARBOXYMETHYLCELLULOSE SODIUM
     Indication: Eye disorder

REACTIONS (4)
  - Eye disorder [Unknown]
  - Multiple use of single-use product [Unknown]
  - Visual impairment [Unknown]
  - Wrong technique in product usage process [Unknown]

NARRATIVE: CASE EVENT DATE: 20250101
